FAERS Safety Report 18717924 (Version 1)
Quarter: 2021Q1

REPORT INFORMATION
  Report Type: Spontaneous
  Country: US (occurrence: US)
  Receive Date: 20210108
  Receipt Date: 20210108
  Transmission Date: 20210419
  Serious: No
  Sender: FDA-Public Use
  Company Number: None

PATIENT
  Age: 66 Year
  Sex: Female

DRUGS (10)
  1. B?COMPLEX/VITAMIN C [Concomitant]
  2. MULTIVITAMIN ADULT [Concomitant]
  3. CAPECITABINE 500 MG TABLET [Suspect]
     Active Substance: CAPECITABINE
     Route: 048
  4. MAGNESIUM OXIDE ?MG SUPPLEMEN [Concomitant]
  5. TRAMADOL HCL [Concomitant]
     Active Substance: TRAMADOL HYDROCHLORIDE
  6. VITAMIN D3 [Concomitant]
     Active Substance: CHOLECALCIFEROL
  7. PLAVIX [Concomitant]
     Active Substance: CLOPIDOGREL BISULFATE
  8. ATORVASTATIN CALCIUM. [Concomitant]
     Active Substance: ATORVASTATIN CALCIUM
  9. CALCIUM CARBONATE. [Concomitant]
     Active Substance: CALCIUM CARBONATE
  10. TURMERIC [Concomitant]
     Active Substance: HERBALS\TURMERIC

REACTIONS (1)
  - Disease progression [None]

NARRATIVE: CASE EVENT DATE: 20210108
